FAERS Safety Report 7022172-5 (Version None)
Quarter: 2010Q3

REPORT INFORMATION
  Report Type: 
  Country: None (occurrence: None)
  Receive Date: 20100930
  Receipt Date: 20100924
  Transmission Date: 20110219
  Serious: Yes (Death, Hospitalization, Other)
  Sender: FDA-Public Use
  Company Number: PHHY2010BR63005

PATIENT
  Sex: Male

DRUGS (1)
  1. TRILEPTAL [Suspect]
     Dosage: UNK
     Route: 048

REACTIONS (9)
  - BRUXISM [None]
  - COMA [None]
  - EYE ROLLING [None]
  - HAEMORRHAGE [None]
  - LUNG NEOPLASM MALIGNANT [None]
  - PNEUMONIA [None]
  - PULMONARY EMBOLISM [None]
  - SPINAL FRACTURE [None]
  - SURGERY [None]
